FAERS Safety Report 8126202-9 (Version None)
Quarter: 2012Q1

REPORT INFORMATION
  Report Type: 
  Country: None (occurrence: None)
  Receive Date: 20120209
  Receipt Date: 20120203
  Transmission Date: 20120608
  Serious: Yes (Death)
  Sender: FDA-Public Use
  Company Number: PHEH2012US002968

PATIENT
  Sex: Male
  Weight: 145 kg

DRUGS (2)
  1. ZOMETA [Suspect]
     Indication: METASTASES TO BONE
     Dosage: 4 MG, QMO
  2. TAXOTERE [Concomitant]
     Dosage: UNK

REACTIONS (1)
  - DEATH [None]
